FAERS Safety Report 6733738-1 (Version None)
Quarter: 2010Q2

REPORT INFORMATION
  Report Type: 
  Country: None (occurrence: None)
  Receive Date: 20100520
  Receipt Date: 20100511
  Transmission Date: 20101027
  Serious: Yes (Hospitalization, Other)
  Sender: FDA-Public Use
  Company Number: PHHY2010JP22376

PATIENT
  Age: 35 Year
  Sex: Female

DRUGS (10)
  1. VOLTAREN [Suspect]
     Indication: UPPER RESPIRATORY TRACT INFLAMMATION
     Dosage: 25 MG, UNK
     Route: 054
     Dates: start: 20100326, end: 20100331
  2. VOLTAREN [Suspect]
     Dosage: 12.5 MG, UNK
     Route: 054
     Dates: start: 20100408, end: 20100408
  3. PONTAL [Concomitant]
     Dosage: UNK
     Route: 048
     Dates: start: 20100405
  4. CALONAL [Concomitant]
     Dosage: 6 DF, UNK
     Route: 048
     Dates: start: 20100326
  5. HOKUNALIN [Concomitant]
     Dosage: 2 MG, UNK
     Route: 062
     Dates: start: 20100326
  6. MUCOSTA [Concomitant]
     Dosage: 300 MG, UNK
     Route: 048
     Dates: start: 20100326
  7. ROCEPHIN [Concomitant]
     Dosage: 2 G, UNK
     Route: 042
     Dates: start: 20100326
  8. MINOCYCLINE HYDROCHLORIDE [Concomitant]
     Dosage: 200 MG, UNK
     Dates: start: 20100326
  9. METILON [Concomitant]
     Dosage: UNK
     Dates: start: 20100327
  10. ARASENA A [Concomitant]
     Dosage: UNK

REACTIONS (6)
  - ABDOMINAL DISTENSION [None]
  - ACUTE LEUKAEMIA [None]
  - LIVER FUNCTION TEST ABNORMAL [None]
  - ORAL HERPES [None]
  - THROMBOCYTOPENIA [None]
  - WHITE BLOOD CELL COUNT INCREASED [None]
